FAERS Safety Report 16308856 (Version 1)
Quarter: 2019Q2

REPORT INFORMATION
  Report Type: Spontaneous
  Country: US (occurrence: US)
  Receive Date: 20190514
  Receipt Date: 20190514
  Transmission Date: 20190711
  Serious: Yes (Hospitalization, Other)
  Sender: FDA-Public Use
  Company Number: US-AUROBINDO-AUR-APL-2019-026475

PATIENT

DRUGS (3)
  1. PREDNISONE. [Suspect]
     Active Substance: PREDNISONE
     Dosage: 60 MILLIGRAM, ONCE A DAY
     Route: 048
  2. PREDNISONE. [Suspect]
     Active Substance: PREDNISONE
     Indication: IMMUNOGLOBULIN G4 RELATED DISEASE
     Dosage: 1 MILLIGRAM/KILOGRAM, DAILY
     Route: 065
  3. TOBRAMYCIN AND DEXAMETHASONE [Suspect]
     Active Substance: DEXAMETHASONE\TOBRAMYCIN
     Indication: IMMUNOGLOBULIN G4 RELATED DISEASE
     Dosage: UNK, FOUR TIMES DAILY
     Route: 065

REACTIONS (6)
  - Herpes simplex [Unknown]
  - Blepharitis [Recovered/Resolved]
  - Corneal epithelium defect [Recovered/Resolved]
  - Conjunctivitis [Recovered/Resolved]
  - Visual acuity reduced [Unknown]
  - Keratitis [Recovered/Resolved]
